FAERS Safety Report 24679405 (Version 2)
Quarter: 2025Q1

REPORT INFORMATION
  Report Type: Report from Study
  Country: US (occurrence: US)
  Receive Date: 20241129
  Receipt Date: 20250217
  Transmission Date: 20250409
  Serious: Yes (Life-Threatening, Other)
  Sender: NOVARTIS
  Company Number: US-002147023-NVSC2024US218683

PATIENT
  Sex: Male

DRUGS (1)
  1. ENTRESTO [Suspect]
     Active Substance: SACUBITRIL\VALSARTAN
     Indication: Product used for unknown indication
     Dosage: 1 DOSAGE FORM, (49-51 MG) BID
     Route: 048

REACTIONS (9)
  - Feeling abnormal [Unknown]
  - Deafness [Unknown]
  - Bipolar disorder [Unknown]
  - Blood pressure abnormal [Unknown]
  - Blood glucose abnormal [Unknown]
  - Chest pain [Unknown]
  - Product use issue [Unknown]
  - Gait disturbance [Unknown]
  - Dyspnoea [Unknown]
